FAERS Safety Report 15329533 (Version 1)
Quarter: 2018Q3

REPORT INFORMATION
  Report Type: Spontaneous
  Country: JP (occurrence: JP)
  Receive Date: 20180829
  Receipt Date: 20180829
  Transmission Date: 20181010
  Serious: Yes (Hospitalization, Other)
  Sender: FDA-Public Use
  Company Number: JP-ROCHE-1864610

PATIENT
  Age: 69 Year
  Sex: Male
  Weight: 64 kg

DRUGS (2)
  1. CELLCEPT [Suspect]
     Active Substance: MYCOPHENOLATE MOFETIL\MYCOPHENOLATE MOFETIL HYDROCHLORIDE
     Indication: PRODUCT USED FOR UNKNOWN INDICATION
     Route: 065
  2. RITUXAN [Suspect]
     Active Substance: RITUXIMAB
     Indication: RENAL TRANSPLANT
     Dosage: 19/MAY/2017, 200 MG
     Route: 041
     Dates: start: 20161107, end: 20161107

REACTIONS (5)
  - Infusion related reaction [Recovered/Resolved]
  - Hepatic cirrhosis [Unknown]
  - Septic shock [Unknown]
  - Gastrointestinal disorder [Unknown]
  - Decreased appetite [Unknown]

NARRATIVE: CASE EVENT DATE: 20161107
